FAERS Safety Report 14602163 (Version 3)
Quarter: 2019Q2

REPORT INFORMATION
  Report Type: Spontaneous
  Country: US (occurrence: US)
  Receive Date: 20180306
  Receipt Date: 20190410
  Transmission Date: 20190711
  Serious: Yes (Hospitalization, Other)
  Sender: FDA-Public Use
  Company Number: US-BRISTOL-MYERS SQUIBB COMPANY-BMS-2018-020841

PATIENT
  Sex: Female
  Weight: 90.7 kg

DRUGS (2)
  1. SPRYCEL [Suspect]
     Active Substance: DASATINIB
     Indication: WHITE BLOOD CELL COUNT INCREASED
     Dosage: 100 MG, QD
     Route: 048
     Dates: start: 20170715
  2. AMLODIPINE [Concomitant]
     Active Substance: AMLODIPINE BESYLATE
     Indication: BLOOD PHOSPHORUS
     Route: 065

REACTIONS (3)
  - Developmental hip dysplasia [Unknown]
  - Rash [Unknown]
  - Hospitalisation [Unknown]
